FAERS Safety Report 25118829 (Version 1)
Quarter: 2025Q1

REPORT INFORMATION
  Report Type: Spontaneous
  Country: HR (occurrence: HR)
  Receive Date: 20250325
  Receipt Date: 20250325
  Transmission Date: 20250409
  Serious: Yes (Other)
  Sender: SANDOZ
  Company Number: None

PATIENT
  Sex: Male

DRUGS (1)
  1. ACETAMINOPHEN [Suspect]
     Active Substance: ACETAMINOPHEN
     Indication: Product used for unknown indication
     Dosage: UZEO IZMEDJU 20 I 30 GRAMA PARACETAMOLA.
     Route: 065
     Dates: start: 202501, end: 202501

REACTIONS (3)
  - Suicide attempt [Unknown]
  - Vomiting [Unknown]
  - Overdose [Unknown]

NARRATIVE: CASE EVENT DATE: 20250101
